FAERS Safety Report 8718998 (Version 2)
Quarter: 2013Q4

REPORT INFORMATION
  Report Type: Spontaneous
  Country: US (occurrence: US)
  Receive Date: 20120812
  Receipt Date: 20131101
  Transmission Date: 20140711
  Serious: No
  Sender: FDA-Public Use
  Company Number: US-009507513-1207USA012384

PATIENT
  Age: 64 Year
  Sex: Female

DRUGS (20)
  1. PRINIVIL [Suspect]
     Route: 048
  2. RHINOCORT AQUA [Suspect]
     Dosage: 4 DF, QD
     Route: 045
  3. METOPROLOL [Suspect]
     Route: 048
  4. TOPROL [Suspect]
     Route: 048
  5. SYMBICORT [Suspect]
     Dosage: 2 DF, BID
     Route: 055
  6. SYMBICORT [Suspect]
     Dosage: 320 MICROGRAM, BID
     Route: 055
  7. COZAAR [Concomitant]
  8. PROAIR HFA [Concomitant]
     Dosage: 2 DF, QID, PRN
     Route: 055
  9. ARISTOCORT (TRIAMCINOLONE) [Concomitant]
  10. ATIVAN [Concomitant]
  11. MOBIC [Concomitant]
     Dosage: 7.5 MG, BID, PRN
  12. NASACORT AQ [Concomitant]
     Dosage: 2 DF, QD, PRN
  13. ZANTAC [Concomitant]
  14. PROCARDIA XL [Concomitant]
  15. POTASSIUM (UNSPECIFIED) [Concomitant]
  16. ZYRTEC [Concomitant]
  17. ACIPHEX [Concomitant]
  18. COREG [Concomitant]
  19. DILTIAZEM HYDROCHLORIDE [Concomitant]
  20. LASIX (FUROSEMIDE) [Concomitant]

REACTIONS (6)
  - Oral candidiasis [Unknown]
  - Sleep disorder [Unknown]
  - Pain [Unknown]
  - Oropharyngeal pain [Unknown]
  - Diarrhoea [Unknown]
  - Cough [Unknown]
